FAERS Safety Report 15825322 (Version 3)
Quarter: 2019Q2

REPORT INFORMATION
  Report Type: Spontaneous
  Country: AU (occurrence: AU)
  Receive Date: 20190115
  Receipt Date: 20190402
  Transmission Date: 20190711
  Serious: Yes (Other)
  Sender: FDA-Public Use
  Company Number: AU-ASTRAZENECA-2019SE05567

PATIENT
  Age: 49 Year
  Sex: Female

DRUGS (5)
  1. SYMBICORT [Suspect]
     Active Substance: BUDESONIDE\FORMOTEROL FUMARATE DIHYDRATE
     Dosage: SYMBICORT 200/6 1 PUFF BD
     Route: 055
     Dates: start: 201806, end: 201812
  2. CICLESONIDE [Suspect]
     Active Substance: CICLESONIDE
     Route: 055
  3. VENTOLIN [Concomitant]
     Active Substance: ALBUTEROL SULFATE
  4. CICLESONIDE [Suspect]
     Active Substance: CICLESONIDE
     Dosage: 320 ONE PUFF TWICE DAILY
     Route: 055
     Dates: start: 201809, end: 201901
  5. CICLESONIDE [Suspect]
     Active Substance: CICLESONIDE
     Dosage: 320 ONE PUFF TWICE DAILY
     Route: 055
     Dates: start: 201803, end: 201808

REACTIONS (6)
  - Myalgia [Unknown]
  - Hypersensitivity [Unknown]
  - Rash [Not Recovered/Not Resolved]
  - Arrhythmia [Unknown]
  - Muscle spasms [Unknown]
  - Pain in extremity [Unknown]

NARRATIVE: CASE EVENT DATE: 201803
